FAERS Safety Report 6448731-6 (Version None)
Quarter: 2009Q4

REPORT INFORMATION
  Report Type: 
  Country: None (occurrence: None)
  Receive Date: 20091120
  Receipt Date: 20090917
  Transmission Date: 20100525
  Serious: No
  Sender: FDA-Public Use
  Company Number: US-KINGPHARMUSA00001-K200901154

PATIENT
  Age: 52 Year
  Sex: Female
  Weight: 90.703 kg

DRUGS (4)
  1. FLECTOR [Suspect]
     Indication: MUSCULOSKELETAL PAIN
     Dosage: 0.5 PATCH, BID
     Route: 061
     Dates: start: 20090915, end: 20090917
  2. TOPAMAX [Concomitant]
     Indication: MIGRAINE
     Dosage: .5 UNK, UNK
  3. VITAMIN D [Concomitant]
     Dosage: UNK
  4. MULTI-VITAMINS [Concomitant]
     Dosage: UNK

REACTIONS (2)
  - DYSGEUSIA [None]
  - NAUSEA [None]
